FAERS Safety Report 19948875 (Version 1)
Quarter: 2021Q4

REPORT INFORMATION
  Report Type: Spontaneous
  Country: CN (occurrence: CN)
  Receive Date: 20211012
  Receipt Date: 20211012
  Transmission Date: 20220303
  Serious: Yes (Other)
  Sender: FDA-Public Use
  Company Number: CN-BAXTER-2021BAX030512

PATIENT
  Age: 72 Year
  Sex: Male
  Weight: 41.5 kg

DRUGS (9)
  1. CYCLOPHOSPHAMIDE [Suspect]
     Active Substance: CYCLOPHOSPHAMIDE
     Indication: Diffuse large B-cell lymphoma
     Dosage: R-CHOP DAY 2
     Route: 041
     Dates: start: 20200914, end: 20200914
  2. SODIUM CHLORIDE [Suspect]
     Active Substance: SODIUM CHLORIDE
     Indication: Medication dilution
     Dosage: RITUXIMAB INJECTION 100 MG DILUTED WITH SODIUM CHLORIDE INJECTION (0.9%) 100ML (FOR 2 HOURS)
     Route: 041
  3. SODIUM CHLORIDE [Suspect]
     Active Substance: SODIUM CHLORIDE
     Dosage: RITUXIMAB INJECTION 450 MG + SODIUM CHLORIDE INJECTION (0.9%) 500ML (FOR 5 HOURS)
     Route: 041
  4. DOXORUBICIN HYDROCHLORIDE [Suspect]
     Active Substance: DOXORUBICIN HYDROCHLORIDE
     Indication: Diffuse large B-cell lymphoma
     Dosage: R-CHOP DAY 2
     Route: 041
     Dates: start: 20200914, end: 20200914
  5. MABTHERA [Suspect]
     Active Substance: RITUXIMAB
     Indication: Diffuse large B-cell lymphoma
     Dosage: RCHOP DAY1
     Route: 041
     Dates: start: 20200914, end: 20200914
  6. MABTHERA [Suspect]
     Active Substance: RITUXIMAB
     Dosage: RITUXIMAB INJECTION 100 MG + SODIUM CHLORIDE INJECTION (0.9%) 100ML (FOR 2 HOURS)
     Route: 041
  7. MABTHERA [Suspect]
     Active Substance: RITUXIMAB
     Dosage: 75 MG/M2 RITUXIMAB INJECTION 450 MG + SODIUM CHLORIDE INJECTION (0.9%) 500ML (FOR 5 HOURS).
     Route: 041
  8. VINCRISTINE [Suspect]
     Active Substance: VINCRISTINE
     Indication: Diffuse large B-cell lymphoma
     Dosage: R-CHOP DAY 2
     Route: 065
     Dates: start: 20200914, end: 20200914
  9. PREDNISONE ACETATE [Suspect]
     Active Substance: PREDNISONE ACETATE
     Indication: Diffuse large B-cell lymphoma
     Dosage: R-CHOP DAY 2-DAY 6
     Route: 065
     Dates: start: 20200914, end: 20200914

REACTIONS (3)
  - Bradycardia [Recovered/Resolved]
  - Bradycardia [Recovering/Resolving]
  - Symptom recurrence [Recovered/Resolved]

NARRATIVE: CASE EVENT DATE: 20200908
